FAERS Safety Report 7804317-X (Version None)
Quarter: 2011Q4

REPORT INFORMATION
  Report Type: 
  Country: None (occurrence: None)
  Receive Date: 20111010
  Receipt Date: 20111003
  Transmission Date: 20120403
  Serious: Yes (Hospitalization)
  Sender: FDA-Public Use
  Company Number: US-B.I. PHARMACEUTICALS,INC./RIDGEFIELD-2011-BP-18976BP

PATIENT
  Sex: Female

DRUGS (12)
  1. TYLENOL-500 [Concomitant]
     Indication: BACK PAIN
     Dosage: 1000 MG
     Route: 048
     Dates: start: 20070101
  2. FISH OIL [Concomitant]
     Indication: SUPPLEMENTATION THERAPY
     Dosage: 4000 MG
     Route: 048
     Dates: start: 20010101
  3. PRADAXA [Suspect]
     Indication: BLOOD TEST
  4. CALCIUM CARBONATE [Concomitant]
     Indication: SUPPLEMENTATION THERAPY
     Dosage: 500 MG
     Route: 048
  5. MULTI-VITAMINS [Concomitant]
     Indication: SUPPLEMENTATION THERAPY
     Route: 048
  6. CO Q10 [Concomitant]
     Indication: SUPPLEMENTATION THERAPY
     Route: 048
     Dates: start: 20010101
  7. ATENOLOL [Concomitant]
     Indication: HYPERTENSION
     Dosage: 25 MG
     Route: 048
     Dates: start: 20030101
  8. DIOVAN [Concomitant]
     Indication: HYPERTENSION
     Dosage: 160 MG
     Route: 048
     Dates: start: 20030101
  9. PRADAXA [Suspect]
     Indication: ATRIAL FIBRILLATION
     Dosage: 300 MG
     Route: 048
     Dates: start: 20110301, end: 20110328
  10. AMBIEN [Concomitant]
     Indication: INSOMNIA
     Route: 048
     Dates: start: 20090101
  11. FLONASE [Concomitant]
     Indication: SEASONAL ALLERGY
     Dosage: 50 MCG
     Route: 055
     Dates: start: 20100101
  12. VICODIN [Concomitant]
     Indication: PAIN

REACTIONS (5)
  - ASTHENIA [None]
  - PAIN IN EXTREMITY [None]
  - FAECES DISCOLOURED [None]
  - ULCER HAEMORRHAGE [None]
  - GASTRITIS HAEMORRHAGIC [None]
